FAERS Safety Report 7398546-X (Version None)
Quarter: 2011Q2

REPORT INFORMATION
  Report Type: 
  Country: None (occurrence: None)
  Receive Date: 20110407
  Receipt Date: 20110330
  Transmission Date: 20111010
  Serious: No
  Sender: FDA-Public Use
  Company Number: US-BIOGENIDEC-2011BI011348

PATIENT
  Sex: Female

DRUGS (2)
  1. TYSABRI [Suspect]
     Indication: MULTIPLE SCLEROSIS
     Route: 042
     Dates: start: 20090630
  2. AVONEX [Concomitant]
     Indication: MULTIPLE SCLEROSIS
     Route: 030

REACTIONS (9)
  - OROPHARYNGEAL PAIN [None]
  - PAIN [None]
  - NASOPHARYNGITIS [None]
  - DECREASED IMMUNE RESPONSIVENESS [None]
  - RHINITIS [None]
  - EAR INFECTION [None]
  - FATIGUE [None]
  - EYE DISCHARGE [None]
  - PHARYNGITIS [None]
